FAERS Safety Report 6595191-0 (Version None)
Quarter: 2010Q1

REPORT INFORMATION
  Report Type: 
  Country: None (occurrence: None)
  Receive Date: 20100212
  Receipt Date: 20100125
  Transmission Date: 20100710
  Serious: Yes (Death)
  Sender: FDA-Public Use
  Company Number: 2010000736

PATIENT
  Age: 10 Month
  Sex: Male

DRUGS (2)
  1. AMRIX [Suspect]
     Dosage: ORAL
     Route: 048
  2. PSEUDOEPHEDRINE HCL [Suspect]

REACTIONS (1)
  - UNEVALUABLE EVENT [None]
